FAERS Safety Report 18118250 (Version 1)
Quarter: 2020Q3

REPORT INFORMATION
  Report Type: Spontaneous
  Country: IT (occurrence: IT)
  Receive Date: 20200806
  Receipt Date: 20200806
  Transmission Date: 20201103
  Serious: Yes (Other)
  Sender: FDA-Public Use
  Company Number: IT-MYLANLABS-2020M1069406

PATIENT
  Age: 6 Decade
  Sex: Female

DRUGS (9)
  1. RITUXIMAB. [Concomitant]
     Active Substance: RITUXIMAB
     Indication: ATAXIA
     Dosage: 1400 MILLIGRAM, QW 5 MONTHS AFTER THE LAST INFUSION
     Route: 058
  2. CYCLOPHOSPHAMIDE. [Concomitant]
     Active Substance: CYCLOPHOSPHAMIDE
     Indication: ATAXIA
  3. IMMUNOGLOBULIN                     /00025201/ [Suspect]
     Active Substance: HUMAN IMMUNOGLOBULIN G
     Indication: ATAXIA
  4. IMMUNOGLOBULIN                     /00025201/ [Suspect]
     Active Substance: HUMAN IMMUNOGLOBULIN G
     Indication: IMMUNE-MEDIATED NEUROPATHY
     Dosage: 2 G/KG OVER 3 DAYS, FIVE COURSES, MONTHLY
     Route: 042
     Dates: start: 201510
  5. CYCLOPHOSPHAMIDE. [Concomitant]
     Active Substance: CYCLOPHOSPHAMIDE
     Indication: IMMUNE-MEDIATED NEUROPATHY
     Dosage: 500 MILLIGRAM, MONTHLY
  6. PREDNISONE. [Suspect]
     Active Substance: PREDNISONE
     Indication: IMMUNE-MEDIATED NEUROPATHY
     Dosage: 1 MILLIGRAM/KILOGRAM, QD
     Route: 048
     Dates: start: 201703
  7. PREDNISONE. [Suspect]
     Active Substance: PREDNISONE
     Indication: ATAXIA
  8. RITUXIMAB. [Concomitant]
     Active Substance: RITUXIMAB
     Indication: IMMUNE-MEDIATED NEUROPATHY
     Dosage: 375 MILLIGRAM/SQ. METER, MONTHLY
     Route: 042
  9. IMMUNOGLOBULIN                     /00025201/ [Suspect]
     Active Substance: HUMAN IMMUNOGLOBULIN G
     Indication: DIPLOPIA
     Dosage: UNK
     Route: 042
     Dates: start: 201610

REACTIONS (4)
  - Diplopia [Recovering/Resolving]
  - Immune-mediated neuropathy [Recovering/Resolving]
  - Ataxia [Recovering/Resolving]
  - Condition aggravated [Recovering/Resolving]
